FAERS Safety Report 5147848-6 (Version None)
Quarter: 2006Q4

REPORT INFORMATION
  Report Type: 
  Country: None (occurrence: None)
  Receive Date: 20060918
  Receipt Date: 20050727
  Transmission Date: 20070319
  Serious: Yes (Other)
  Sender: FDA-Public Use
  Company Number: US-JNJFOC-20050706189

PATIENT
  Age: 43 Year
  Sex: Male
  Weight: 105.6881 kg

DRUGS (2)
  1. TOPAMAX [Suspect]
     Indication: HEADACHE
     Dosage: 50 MG, 1 IN 1 DAY, ORAL
     Route: 048
     Dates: start: 20050517
  2. TOPAMAX [Suspect]
     Indication: PYREXIA
     Dosage: 50 MG, 1 IN 1 DAY, ORAL
     Route: 048
     Dates: start: 20050517

REACTIONS (3)
  - ALOPECIA [None]
  - ANHIDROSIS [None]
  - BODY TEMPERATURE INCREASED [None]
